FAERS Safety Report 25371086 (Version 2)
Quarter: 2025Q3

REPORT INFORMATION
  Report Type: Report from Study
  Country: US (occurrence: US)
  Receive Date: 20250529
  Receipt Date: 20250809
  Transmission Date: 20251021
  Serious: Yes (Other)
  Sender: ALEXION PHARMACEUTICALS
  Company Number: US-ASTRAZENECA-202505USA022590US

PATIENT
  Sex: Female

DRUGS (1)
  1. ANIFROLUMAB [Suspect]
     Active Substance: ANIFROLUMAB
     Dosage: STRENGTH 300MG/2ML, 300 MILLIGRAM, Q4W
     Dates: start: 20240515

REACTIONS (8)
  - Neuropathy peripheral [Unknown]
  - Systemic lupus erythematosus [Unknown]
  - Product dose omission issue [Unknown]
  - Arthralgia [Unknown]
  - Mucosal inflammation [Unknown]
  - Rash [Unknown]
  - Flushing [Unknown]
  - Fatigue [Recovering/Resolving]
